FAERS Safety Report 7172306-7 (Version None)
Quarter: 2010Q4

REPORT INFORMATION
  Report Type: 
  Country: None (occurrence: None)
  Receive Date: 20101217
  Receipt Date: 20100204
  Transmission Date: 20110411
  Serious: No
  Sender: FDA-Public Use
  Company Number: US-AMGEN-KDL390720

PATIENT

DRUGS (5)
  1. ENBREL [Suspect]
     Indication: PRODUCT USED FOR UNKNOWN INDICATION
     Dosage: 50 MG, QWK
     Route: 058
     Dates: start: 20091101
  2. ISONIAZID [Concomitant]
     Dosage: 300 MG, UNK
  3. CALCIUM [Concomitant]
     Dosage: 600 MG, UNK
  4. ETODOLAC [Concomitant]
     Dosage: 400 MG, UNK
  5. PREDNISONE [Concomitant]
     Dosage: 10 MG, UNK

REACTIONS (4)
  - INJECTION SITE PRURITUS [None]
  - INJECTION SITE REACTION [None]
  - INJECTION SITE SWELLING [None]
  - INJECTION SITE WARMTH [None]
